FAERS Safety Report 11690138 (Version 1)
Quarter: 2015Q4

REPORT INFORMATION
  Report Type: Spontaneous
  Country: JP (occurrence: JP)
  Receive Date: 20151102
  Receipt Date: 20151102
  Transmission Date: 20160304
  Serious: No
  Sender: FDA-Public Use
  Company Number: JP-JNJFOC-20151024550

PATIENT

DRUGS (3)
  1. OXYNORM [Concomitant]
     Active Substance: OXYCODONE HYDROCHLORIDE
     Indication: CANCER PAIN
     Route: 048
  2. ONEDURO [Suspect]
     Active Substance: FENTANYL
     Indication: CANCER PAIN
     Route: 062
  3. ONEDURO [Suspect]
     Active Substance: FENTANYL
     Indication: CANCER PAIN
     Route: 062

REACTIONS (2)
  - Wrong technique in product usage process [Unknown]
  - Somnolence [Unknown]
